FAERS Safety Report 4775518-2 (Version None)
Quarter: 2005Q3

REPORT INFORMATION
  Report Type: 
  Country: None (occurrence: None)
  Receive Date: 20050922
  Receipt Date: 20050912
  Transmission Date: 20060218
  Serious: Yes (Death, Hospitalization)
  Sender: FDA-Public Use
  Company Number: NSADSS2003001923

PATIENT
  Sex: Female

DRUGS (14)
  1. REMICADE [Suspect]
     Indication: RHEUMATOID ARTHRITIS
     Route: 041
     Dates: start: 20000502, end: 20021201
  2. METHOTREXATE [Concomitant]
  3. PREDNISONE [Concomitant]
  4. FOLIC ACID [Concomitant]
  5. CALCIUM GLUCONATE [Concomitant]
  6. LEVOXYL [Concomitant]
  7. ZOCOR [Concomitant]
  8. INSULIN [Concomitant]
  9. ACTOS [Concomitant]
  10. ISOSORBIDE [Concomitant]
  11. ACTONEL [Concomitant]
  12. ATACAND [Concomitant]
  13. ASPIRIN [Concomitant]
  14. LASIX [Concomitant]

REACTIONS (3)
  - CARDIAC FAILURE CONGESTIVE [None]
  - CORONARY ARTERY ATHEROSCLEROSIS [None]
  - CORONARY ARTERY DISEASE [None]
